FAERS Safety Report 8504483-7 (Version None)
Quarter: 2012Q3

REPORT INFORMATION
  Report Type: 
  Country: None (occurrence: None)
  Receive Date: 20120711
  Receipt Date: 20120704
  Transmission Date: 20120928
  Serious: No
  Sender: FDA-Public Use
  Company Number: CA-PFIZER INC-2012137368

PATIENT
  Sex: Male
  Weight: 88.435 kg

DRUGS (1)
  1. VIAGRA [Suspect]
     Indication: ERECTILE DYSFUNCTION
     Dosage: 100 MG, AS NEEDED

REACTIONS (2)
  - ERYTHEMA [None]
  - DRUG INEFFECTIVE [None]
